FAERS Safety Report 8491486-4 (Version None)
Quarter: 2012Q3

REPORT INFORMATION
  Report Type: 
  Country: None (occurrence: None)
  Receive Date: 20120706
  Receipt Date: 20120618
  Transmission Date: 20120928
  Serious: Yes (Hospitalization)
  Sender: FDA-Public Use
  Company Number: DK-PFIZER INC-2012151571

PATIENT
  Age: 46 Year
  Sex: Male
  Weight: 76 kg

DRUGS (13)
  1. RAPAMUNE [Suspect]
     Dosage: 1.5 MG, 1X/DAY
     Route: 048
     Dates: end: 20120301
  2. VEPICOMBIN [Concomitant]
  3. AMLODIPINE [Concomitant]
  4. PREDNISOLONE [Concomitant]
  5. NASONEX [Concomitant]
  6. RAPAMUNE [Suspect]
     Indication: PROPHYLAXIS AGAINST TRANSPLANT REJECTION
     Dosage: 2 MG, 1X/DAY
     Route: 048
     Dates: start: 20120302, end: 20120603
  7. PANTOPRAZOLE [Concomitant]
  8. SIMVASTATIN [Concomitant]
  9. HJERTEMAGNYL ^DAK^ [Concomitant]
  10. LOSARSTAD [Concomitant]
  11. ACETAMINOPHEN [Concomitant]
  12. KETOCONAZOLE [Concomitant]
  13. ZOPICLONE [Concomitant]

REACTIONS (2)
  - DANDRUFF [None]
  - MUSCLE FATIGUE [None]
